FAERS Safety Report 6377945-9 (Version None)
Quarter: 2009Q3

REPORT INFORMATION
  Report Type: 
  Country: None (occurrence: None)
  Receive Date: 20090925
  Receipt Date: 20090917
  Transmission Date: 20100115
  Serious: Yes (Hospitalization, Other)
  Sender: FDA-Public Use
  Company Number: PHHY2009GB08925

PATIENT
  Sex: Female

DRUGS (7)
  1. CLOZARIL [Suspect]
     Indication: SCHIZOPHRENIA
     Dosage: 450 MG/DAY
     Route: 048
     Dates: start: 20081010
  2. CLOZARIL [Suspect]
     Dosage: 450 MG DAILY
     Dates: start: 20090101
  3. CLOZARIL [Suspect]
     Dosage: 350 MG/DAY
  4. MIRTAZAPINE [Concomitant]
     Indication: DEPRESSION
     Dosage: 450 MG, UNK
     Route: 048
  5. ZOPICLONE [Concomitant]
     Dosage: 7.5 MG, UNK
     Route: 048
  6. DIAZEPAM [Concomitant]
     Indication: AGITATION
     Dosage: 2 MG, BID
     Route: 048
  7. AMISULPRIDE [Concomitant]
     Dosage: 100 MG, UNK
     Route: 048

REACTIONS (10)
  - CONDITION AGGRAVATED [None]
  - DIZZINESS [None]
  - EATING DISORDER [None]
  - FACIAL SPASM [None]
  - HEART RATE INCREASED [None]
  - JOINT CREPITATION [None]
  - MALAISE [None]
  - MENTAL DISORDER [None]
  - ORTHOSTATIC HYPOTENSION [None]
  - SYNCOPE [None]
